FAERS Safety Report 25276207 (Version 1)
Quarter: 2025Q2

REPORT INFORMATION
  Report Type: Spontaneous
  Country: CA (occurrence: CA)
  Receive Date: 20250507
  Receipt Date: 20250507
  Transmission Date: 20250717
  Serious: Yes (Death)
  Sender: AMGEN
  Company Number: CA-AMGEN-CANSP2025088385

PATIENT
  Sex: Male

DRUGS (1)
  1. REPATHA [Suspect]
     Active Substance: EVOLOCUMAB
     Indication: Arteriosclerosis
     Dosage: UNK, Q2WK
     Route: 065
     Dates: start: 20240712

REACTIONS (1)
  - Death [Fatal]
